FAERS Safety Report 9017403 (Version 4)
Quarter: 2013Q2

REPORT INFORMATION
  Report Type: Spontaneous
  Country: US (occurrence: US)
  Receive Date: 20130117
  Receipt Date: 20130403
  Transmission Date: 20140414
  Serious: Yes (Death)
  Sender: FDA-Public Use
  Company Number: PHEH2013US001250

PATIENT
  Sex: Male

DRUGS (1)
  1. COMTAN [Suspect]
     Indication: PARKINSON^S DISEASE
     Dosage: 5 DF, DAILY
     Route: 048

REACTIONS (1)
  - Death [Fatal]
